FAERS Safety Report 5608143-1 (Version None)
Quarter: 2008Q1

REPORT INFORMATION
  Report Type: 
  Country: None (occurrence: None)
  Receive Date: 20080130
  Receipt Date: 20080125
  Transmission Date: 20080703
  Serious: Yes (Disabling)
  Sender: FDA-Public Use
  Company Number: US-ASTRAZENECA-2008UW00788

PATIENT
  Age: 17477 Day
  Sex: Female

DRUGS (1)
  1. SENSORCAINE-MPF [Suspect]
     Indication: ANAESTHESIA
     Route: 037
     Dates: start: 20051122, end: 20051122

REACTIONS (2)
  - ABASIA [None]
  - MUSCULAR WEAKNESS [None]
